FAERS Safety Report 12961497 (Version 1)
Quarter: 2016Q4

REPORT INFORMATION
  Report Type: Spontaneous
  Country: IT (occurrence: IT)
  Receive Date: 20161121
  Receipt Date: 20161121
  Transmission Date: 20170207
  Serious: Yes (Hospitalization)
  Sender: FDA-Public Use
  Company Number: IT-SA-2016SA206069

PATIENT
  Age: 62 Year
  Sex: Male

DRUGS (2)
  1. CLOPIDOGREL BISULFATE. [Suspect]
     Active Substance: CLOPIDOGREL BISULFATE
     Indication: ANTICOAGULANT THERAPY
     Route: 065
  2. ACETYLSALICYLIC ACID [Suspect]
     Active Substance: ASPIRIN
     Indication: ANTICOAGULANT THERAPY
     Route: 065

REACTIONS (9)
  - Gastric ulcer [Recovering/Resolving]
  - Arterial stenosis [Recovering/Resolving]
  - Arteriosclerosis coronary artery [Recovering/Resolving]
  - Drug ineffective [Unknown]
  - Anaemia [Unknown]
  - Melaena [Unknown]
  - Vascular stent restenosis [Recovering/Resolving]
  - Cardiac arrest [Recovering/Resolving]
  - Ventricular tachycardia [Recovering/Resolving]
